FAERS Safety Report 11615148 (Version 1)
Quarter: 2015Q4

REPORT INFORMATION
  Report Type: Spontaneous
  Country: US (occurrence: None)
  Receive Date: 20151008
  Receipt Date: 20151008
  Transmission Date: 20160304
  Serious: Yes (Other)
  Sender: FDA-Public Use
  Company Number: None

PATIENT
  Age: 58 Year
  Sex: Male
  Weight: 60.33 kg

DRUGS (4)
  1. ATORVASTATIN 80 MG [Suspect]
     Active Substance: ATORVASTATIN
     Indication: CORONARY ARTERY DISEASE
     Route: 048
     Dates: start: 20141220, end: 20150817
  2. ASPIRIN. [Concomitant]
     Active Substance: ASPIRIN
  3. ATENOLOL. [Concomitant]
     Active Substance: ATENOLOL
  4. MULTIVITAMIN [Concomitant]
     Active Substance: VITAMINS

REACTIONS (5)
  - Asthenia [None]
  - Hunger [None]
  - Alanine aminotransferase increased [None]
  - Aspartate aminotransferase increased [None]
  - Product substitution issue [None]

NARRATIVE: CASE EVENT DATE: 20150817
